FAERS Safety Report 8281088-7 (Version None)
Quarter: 2012Q2

REPORT INFORMATION
  Report Type: 
  Country: None (occurrence: None)
  Receive Date: 20120413
  Receipt Date: 20120408
  Transmission Date: 20120825
  Serious: Yes (Other)
  Sender: FDA-Public Use
  Company Number: DE-AMGEN-DEUSP2012020368

PATIENT
  Age: 70 Year
  Sex: Female

DRUGS (2)
  1. ERGOCALCIFEROL [Concomitant]
     Indication: OSTEOPOROSIS
     Dosage: 1000 UNK, UNK
     Route: 048
     Dates: end: 20120402
  2. PROLIA [Suspect]
     Indication: OSTEOPOROSIS
     Dosage: 60 MG, Q6MO
     Route: 058
     Dates: start: 20100601, end: 20120201

REACTIONS (3)
  - AGE-RELATED MACULAR DEGENERATION [None]
  - RETINAL TEAR [None]
  - MACULOPATHY [None]
